FAERS Safety Report 4952361-2 (Version None)
Quarter: 2006Q1

REPORT INFORMATION
  Report Type: 
  Country: None (occurrence: None)
  Receive Date: 20060320
  Receipt Date: 20060307
  Transmission Date: 20060701
  Serious: Yes (Other)
  Sender: FDA-Public Use
  Company Number: HQWYE225709MAR06

PATIENT
  Sex: Male

DRUGS (1)
  1. ADVIL [Suspect]
     Indication: ARTHRALGIA
     Dosage: ORAL
     Route: 048

REACTIONS (8)
  - EOSINOPHIL COUNT INCREASED [None]
  - FIBROSIS [None]
  - LYMPHADENOPATHY [None]
  - MEGAKARYOCYTES INCREASED [None]
  - SPLENOMEGALY [None]
  - SYNCOPE [None]
  - SYSTEMIC MASTOCYTOSIS [None]
  - TRYPTASE INCREASED [None]
